FAERS Safety Report 12627487 (Version 2)
Quarter: 2016Q3

REPORT INFORMATION
  Report Type: Report from Study
  Country: US (occurrence: US)
  Receive Date: 20160805
  Receipt Date: 20160818
  Transmission Date: 20161109
  Serious: Yes (Other)
  Sender: FDA-Public Use
  Company Number: US-TEVA-682695USA

PATIENT
  Age: 69 Year
  Sex: Male
  Weight: 77.83 kg

DRUGS (13)
  1. METHOTREXATE. [Suspect]
     Active Substance: METHOTREXATE
     Dosage: METHOTREXATE VS PLACEBO
     Dates: start: 20150704, end: 20150711
  2. ASPIRIN. [Concomitant]
     Active Substance: ASPIRIN
  3. VITAMIN D [Concomitant]
     Active Substance: CHOLECALCIFEROL
  4. METHOTREXATE. [Suspect]
     Active Substance: METHOTREXATE
     Dosage: METHOTREXATE VS PLACEBO
     Dates: start: 20150718, end: 20151205
  5. FOLIC ACID. [Suspect]
     Active Substance: FOLIC ACID
     Dosage: DAILY SUNDAY THROUGH FRIDAY
     Route: 048
     Dates: start: 20150624, end: 20160426
  6. AMLODIPINE [Concomitant]
     Active Substance: AMLODIPINE BESYLATE
  7. NITROSTAT [Concomitant]
     Active Substance: NITROGLYCERIN
  8. METHOTREXATE. [Suspect]
     Active Substance: METHOTREXATE
     Indication: CARDIOVASCULAR EVENT PROPHYLAXIS
     Dosage: 2.8571 MILLIGRAM DAILY; METHOTREXATE VS PLACEBO
     Route: 048
     Dates: start: 20151212, end: 20160423
  9. LOVASTATIN. [Concomitant]
     Active Substance: LOVASTATIN
  10. METHOTREXATE. [Suspect]
     Active Substance: METHOTREXATE
     Dosage: METHOTREXATE VS PLACEBO
     Dates: start: 20150627
  11. FOSINOPRIL [Concomitant]
     Active Substance: FOSINOPRIL
  12. METOPROLOL. [Concomitant]
     Active Substance: METOPROLOL
  13. SERTRALINE HYDROCHLORIDE. [Concomitant]
     Active Substance: SERTRALINE HYDROCHLORIDE

REACTIONS (1)
  - Cholangiocarcinoma [Not Recovered/Not Resolved]

NARRATIVE: CASE EVENT DATE: 20160720
